FAERS Safety Report 15683511 (Version 1)
Quarter: 2018Q4

REPORT INFORMATION
  Report Type: Spontaneous
  Country: US (occurrence: US)
  Receive Date: 20181204
  Receipt Date: 20181204
  Transmission Date: 20190205
  Serious: Yes (Other)
  Sender: FDA-Public Use
  Company Number: US-AUROBINDO-AUR-APL-2018-056872

PATIENT
  Age: 59 Year
  Sex: Female

DRUGS (2)
  1. PREDNISONE. [Concomitant]
     Active Substance: PREDNISONE
     Indication: SCLERITIS
     Dosage: UNK
     Route: 065
  2. DEXAMETHASONE INJECTION [Suspect]
     Active Substance: DEXAMETHASONE
     Indication: SCLERITIS
     Dosage: UNK,INTRAVITREAL DEXAMETHASONE IMPLANT, INTRALENTICULAR IMPLANT
     Route: 065

REACTIONS (1)
  - Cataract traumatic [Recovering/Resolving]
